FAERS Safety Report 5751274-6 (Version None)
Quarter: 2008Q2

REPORT INFORMATION
  Report Type: 
  Country: None (occurrence: None)
  Receive Date: 20080528
  Receipt Date: 20080516
  Transmission Date: 20081010
  Serious: Yes (Other)
  Sender: FDA-Public Use
  Company Number: US-PFIZER INC-2007008521

PATIENT
  Sex: Female
  Weight: 38.6 kg

DRUGS (12)
  1. CHANTIX [Suspect]
     Indication: SMOKING CESSATION THERAPY
     Dates: start: 20060101, end: 20070131
  2. PREMARIN [Concomitant]
  3. AVAPRO [Concomitant]
  4. TIAZAC [Concomitant]
  5. DETROL LA [Concomitant]
  6. CYMBALTA [Concomitant]
  7. DEPAKOTE [Concomitant]
  8. DILAUDID [Concomitant]
  9. CAFERGOT [Concomitant]
  10. VALIUM [Concomitant]
     Indication: NERVOUSNESS
  11. OXYCONTIN [Concomitant]
  12. DESYREL [Concomitant]
     Indication: SLEEP DISORDER

REACTIONS (16)
  - ABNORMAL DREAMS [None]
  - ANOREXIA [None]
  - CHANGE OF BOWEL HABIT [None]
  - COLD SWEAT [None]
  - CONFUSIONAL STATE [None]
  - DYSGEUSIA [None]
  - HEADACHE [None]
  - INFLUENZA [None]
  - INSOMNIA [None]
  - NAUSEA [None]
  - NERVOUSNESS [None]
  - NIGHTMARE [None]
  - PAROSMIA [None]
  - PLASTIC SURGERY [None]
  - TREMOR [None]
  - WEIGHT DECREASED [None]
